FAERS Safety Report 21963285 (Version 1)
Quarter: 2023Q1

REPORT INFORMATION
  Report Type: Spontaneous
  Country: AT (occurrence: AT)
  Receive Date: 20230207
  Receipt Date: 20230207
  Transmission Date: 20230418
  Serious: Yes (Other)
  Sender: FDA-Public Use
  Company Number: None

PATIENT
  Age: 65 Year
  Sex: Female
  Weight: 58 kg

DRUGS (1)
  1. PAXLOVID [Suspect]
     Active Substance: NIRMATRELVIR\RITONAVIR
     Indication: COVID-19
     Dosage: UNK
     Dates: start: 202212

REACTIONS (6)
  - Fatigue [Unknown]
  - Headache [Unknown]
  - Dizziness [Unknown]
  - Amnesia [Unknown]
  - Bradyphrenia [Unknown]
  - Asthenia [Unknown]

NARRATIVE: CASE EVENT DATE: 20221201
